FAERS Safety Report 9409662 (Version 1)
Quarter: 2013Q3

REPORT INFORMATION
  Report Type: Spontaneous
  Country: FR (occurrence: FR)
  Receive Date: 20130719
  Receipt Date: 20130719
  Transmission Date: 20140515
  Serious: Yes (Hospitalization)
  Sender: FDA-Public Use
  Company Number: FR-PFIZER INC-2013211349

PATIENT
  Age: 77 Year
  Sex: Male

DRUGS (4)
  1. AMLOR [Suspect]
     Dosage: UNK
  2. INIPOMP [Suspect]
     Dosage: UNK
  3. MICARDISPLUS [Suspect]
     Dosage: UNK
  4. JOSIR [Suspect]

REACTIONS (2)
  - Loss of consciousness [Recovered/Resolved]
  - Malaise [Recovered/Resolved]
